FAERS Safety Report 19945779 (Version 2)
Quarter: 2021Q4

REPORT INFORMATION
  Report Type: Spontaneous
  Country: GB (occurrence: GB)
  Receive Date: 20211012
  Receipt Date: 20211014
  Transmission Date: 20220303
  Serious: Yes (Hospitalization, Other)
  Sender: FDA-Public Use
  Company Number: GB-PFIZER INC-202101286517

PATIENT
  Age: 57 Year
  Sex: Male

DRUGS (4)
  1. AXITINIB [Suspect]
     Active Substance: AXITINIB
     Indication: Metastatic renal cell carcinoma
     Dosage: 3 MG
  2. AVELUMAB [Suspect]
     Active Substance: AVELUMAB
     Indication: Metastatic renal cell carcinoma
     Dosage: UNK
     Dates: start: 20200703
  3. GLICLAZIDE [Concomitant]
     Active Substance: GLICLAZIDE
     Indication: Diabetes mellitus
     Dosage: UNK
  4. AMLODIPINE [Concomitant]
     Active Substance: AMLODIPINE BESYLATE
     Indication: Hypertension
     Dosage: UNK

REACTIONS (8)
  - Chest pain [Unknown]
  - Dyspnoea [Unknown]
  - Electrocardiogram ST segment elevation [Unknown]
  - Troponin increased [Unknown]
  - Coronary artery occlusion [Unknown]
  - Systolic dysfunction [Unknown]
  - Atrial enlargement [Unknown]
  - Mitral valve incompetence [Unknown]
